FAERS Safety Report 11103733 (Version 16)
Quarter: 2016Q3

REPORT INFORMATION
  Report Type: Spontaneous
  Country: US (occurrence: US)
  Receive Date: 20150511
  Receipt Date: 20160808
  Transmission Date: 20161109
  Serious: Yes (Other)
  Sender: FDA-Public Use
  Company Number: US-PFIZER INC-2015123927

PATIENT
  Age: 61 Year
  Sex: Male
  Weight: 63 kg

DRUGS (22)
  1. GEMFIBROZIL. [Concomitant]
     Active Substance: GEMFIBROZIL
     Indication: BLOOD TRIGLYCERIDES INCREASED
     Dosage: UNK
  2. SUTENT [Suspect]
     Active Substance: SUNITINIB MALATE
     Dosage: 50 MG, CYCLIC (14 ON/ 14 OFF)
     Dates: start: 20150618, end: 2015
  3. LEXAPRO [Concomitant]
     Active Substance: ESCITALOPRAM OXALATE
     Dosage: UNK
     Dates: start: 201410, end: 20150501
  4. ZANTAC [Concomitant]
     Active Substance: RANITIDINE HYDROCHLORIDE
     Dosage: UNK, AS NEEDED
     Dates: start: 1985
  5. GEMFIBROZIL. [Concomitant]
     Active Substance: GEMFIBROZIL
     Indication: BLOOD CHOLESTEROL INCREASED
  6. SUTENT [Suspect]
     Active Substance: SUNITINIB MALATE
     Dosage: 37.5 MG, ONE WEEK ON/ONE WEEK OFF
     Dates: start: 201508, end: 20151015
  7. PROTONIX [Concomitant]
     Active Substance: PANTOPRAZOLE SODIUM
     Dosage: UNK
     Dates: start: 201410, end: 201501
  8. ALLOPURINOL. [Concomitant]
     Active Substance: ALLOPURINOL
     Dosage: UNK
     Dates: start: 200910
  9. SUTENT [Suspect]
     Active Substance: SUNITINIB MALATE
     Dosage: 37.5 MG, (DAILY 1WEEK ON/1 WEEK OFF)
     Dates: start: 20160422
  10. LOVASTATIN. [Concomitant]
     Active Substance: LOVASTATIN
     Indication: BLOOD TRIGLYCERIDES
     Dosage: UNK
     Dates: start: 200503
  11. FIBER GUMMIES [Concomitant]
     Dosage: UNK
     Dates: start: 201410, end: 201503
  12. TUMS [Concomitant]
     Active Substance: CALCIUM CARBONATE
     Dosage: UNK, AS NEEDED
  13. SUTENT [Suspect]
     Active Substance: SUNITINIB MALATE
     Indication: METASTATIC RENAL CELL CARCINOMA
     Dosage: 50 MG CYCLIC DAILY (28 ON/ 14 OFF)
     Dates: start: 20150403, end: 2015
  14. METOPROLOL. [Concomitant]
     Active Substance: METOPROLOL
     Dosage: UNK
     Dates: start: 200503
  15. VITAMIN B12 [Concomitant]
     Active Substance: CYANOCOBALAMIN
     Dosage: UNK
     Dates: start: 201410
  16. SUTENT [Suspect]
     Active Substance: SUNITINIB MALATE
     Dosage: 37.5 MG, (1WEEK ON/1 WEEK OFF)
     Dates: start: 20150403, end: 20151215
  17. LOVASTATIN. [Concomitant]
     Active Substance: LOVASTATIN
     Indication: BLOOD CHOLESTEROL
  18. MELATONIN [Concomitant]
     Active Substance: MELATONIN
     Dosage: UNK
     Dates: start: 201504
  19. PEPTO-BISMOL [Concomitant]
     Active Substance: BISMUTH SUBSALICYLATE
     Dosage: UNK, AS NEEDED
  20. SUTENT [Suspect]
     Active Substance: SUNITINIB MALATE
     Dosage: 50 MG, CYCLIC (7 ON/ 7 OFF)
     Dates: start: 20150724, end: 2015
  21. XANAX [Concomitant]
     Active Substance: ALPRAZOLAM
     Dosage: UNK
     Dates: start: 201410, end: 201412
  22. FERROUS SULFATE. [Concomitant]
     Active Substance: FERROUS SULFATE
     Dosage: UNK
     Dates: start: 201410, end: 20150501

REACTIONS (39)
  - Haematochezia [Unknown]
  - Pain in extremity [Not Recovered/Not Resolved]
  - Gait disturbance [Not Recovered/Not Resolved]
  - Acne [Unknown]
  - Dysgeusia [Not Recovered/Not Resolved]
  - Abdominal pain [Recovering/Resolving]
  - Pruritus [Unknown]
  - Metastatic renal cell carcinoma [Unknown]
  - Pain of skin [Recovered/Resolved]
  - Rash [Recovered/Resolved]
  - Palmar-plantar erythrodysaesthesia syndrome [Not Recovered/Not Resolved]
  - Oral pain [Unknown]
  - Pyrexia [Unknown]
  - Inflammation [Unknown]
  - Breath odour [Unknown]
  - Diarrhoea [Recovering/Resolving]
  - Haemorrhoids [Not Recovered/Not Resolved]
  - Skin sensitisation [Unknown]
  - Diverticulitis [Recovering/Resolving]
  - Glossitis [Not Recovered/Not Resolved]
  - Tongue discomfort [Not Recovered/Not Resolved]
  - Proctalgia [Recovered/Resolved]
  - Disease progression [Unknown]
  - Tooth disorder [Not Recovered/Not Resolved]
  - Noninfective gingivitis [Not Recovered/Not Resolved]
  - Blister [Unknown]
  - Skin exfoliation [Not Recovered/Not Resolved]
  - Toothache [Not Recovered/Not Resolved]
  - Blood cholesterol increased [Unknown]
  - Stomatitis [Not Recovered/Not Resolved]
  - Decreased appetite [Unknown]
  - Fatigue [Unknown]
  - White blood cell count decreased [Unknown]
  - Oral discomfort [Not Recovered/Not Resolved]
  - Gingival bleeding [Unknown]
  - Dehydration [Unknown]
  - Gingival pain [Not Recovered/Not Resolved]
  - Hyperkeratosis [Not Recovered/Not Resolved]
  - Parosmia [Unknown]

NARRATIVE: CASE EVENT DATE: 20150403
